FAERS Safety Report 24213325 (Version 1)
Quarter: 2024Q3

REPORT INFORMATION
  Report Type: Spontaneous
  Country: US (occurrence: None)
  Receive Date: 20240814
  Receipt Date: 20240814
  Transmission Date: 20241016
  Serious: Yes (Hospitalization)
  Sender: Public
  Company Number: None

PATIENT
  Age: 67 Year
  Sex: Male

DRUGS (6)
  1. TACROLIMUS [Suspect]
     Active Substance: TACROLIMUS
     Indication: Renal transplant
     Dosage: FREQUENCY : TWICE A DAY;?
     Route: 048
  2. CALCITRIOL [Concomitant]
     Active Substance: CALCITRIOL
  3. TAMSULOSIN [Concomitant]
     Active Substance: TAMSULOSIN
  4. PREDNISONE [Concomitant]
     Active Substance: PREDNISONE
  5. VERAPAMIL [Concomitant]
     Active Substance: VERAPAMIL HYDROCHLORIDE
  6. JANUVIA [Concomitant]

REACTIONS (1)
  - Haematological neoplasm [None]
